FAERS Safety Report 7462766-6 (Version None)
Quarter: 2011Q2

REPORT INFORMATION
  Report Type: 
  Country: None (occurrence: None)
  Receive Date: 20110506
  Receipt Date: 20110426
  Transmission Date: 20111010
  Serious: Yes (Life-Threatening, Other)
  Sender: FDA-Public Use
  Company Number: JP-CELGENEUS-087-21880-10090529

PATIENT
  Sex: Female

DRUGS (14)
  1. PANABATE [Concomitant]
     Indication: MULTIPLE MYELOMA
     Dosage: 1500 MILLIGRAM
     Route: 041
     Dates: start: 20100723
  2. NEOPHAGEN [Concomitant]
     Indication: ASPARTATE AMINOTRANSFERASE INCREASED
     Dosage: 40 MILLILITER
     Route: 051
     Dates: start: 20100815
  3. TELEMINSOFT [Concomitant]
     Dosage: 10 MILLIGRAM
     Route: 054
     Dates: start: 20100827, end: 20100827
  4. ORGARAN [Concomitant]
     Indication: PROPHYLAXIS
     Dosage: 2500 IU (INTERNATIONAL UNIT)
     Route: 051
     Dates: start: 20100820
  5. FUNGUARD [Concomitant]
     Indication: MULTIPLE MYELOMA
     Dosage: 100 MILLIGRAM
     Route: 041
     Dates: start: 20100708
  6. LOXOPROFEN [Concomitant]
     Dosage: 120 MILLIGRAM
     Route: 048
     Dates: start: 20100804, end: 20100830
  7. REVLIMID [Suspect]
     Indication: MULTIPLE MYELOMA
     Dosage: 10 MILLIGRAM
     Route: 048
     Dates: start: 20100820, end: 20100827
  8. NEOPHAGEN [Concomitant]
  9. PARIET [Concomitant]
     Indication: PROPHYLAXIS
     Dosage: 10 MILLIGRAM
     Route: 048
     Dates: start: 20100820, end: 20100830
  10. OMEPRAZOLE [Concomitant]
     Indication: PROPHYLAXIS
     Dosage: 40 MILLIGRAM
     Route: 051
     Dates: start: 20100831
  11. DECADRON [Concomitant]
     Indication: MULTIPLE MYELOMA
     Dosage: 5 MILLIGRAM
     Route: 048
     Dates: start: 20100820, end: 20100823
  12. MAGNESIUM OXIDE [Concomitant]
     Dosage: 2 GRAM
     Route: 048
     Dates: start: 20100511, end: 20100830
  13. RISPERDAL [Concomitant]
     Indication: PROPHYLAXIS
     Dosage: .5 MILLILITER
     Route: 048
     Dates: start: 20100721, end: 20100830
  14. WYSTAL [Concomitant]
     Indication: PROPHYLAXIS
     Dosage: 2 GRAM
     Route: 041
     Dates: start: 20100826, end: 20100831

REACTIONS (8)
  - SEPTIC SHOCK [None]
  - RENAL FAILURE ACUTE [None]
  - VENTRICULAR EXTRASYSTOLES [None]
  - PNEUMONIA [None]
  - PRINZMETAL ANGINA [None]
  - ABSCESS [None]
  - CARDIOGENIC SHOCK [None]
  - CHOLECYSTITIS ACUTE [None]
